FAERS Safety Report 9461544 (Version 3)
Quarter: 2014Q1

REPORT INFORMATION
  Report Type: Spontaneous
  Country: US (occurrence: US)
  Receive Date: 20130816
  Receipt Date: 20140224
  Transmission Date: 20141002
  Serious: Yes (Death, Other)
  Sender: FDA-Public Use
  Company Number: US-BRISTOL-MYERS SQUIBB COMPANY-18550723

PATIENT
  Age: 56 Year
  Sex: Male
  Weight: 95.24 kg

DRUGS (14)
  1. BYETTA [Suspect]
     Indication: TYPE 2 DIABETES MELLITUS
     Dates: start: 20070827
  2. JANUVIA [Concomitant]
     Indication: TYPE 2 DIABETES MELLITUS
     Dates: start: 200705
  3. LANTUS [Concomitant]
     Dosage: 1DF=32 UNITS
  4. COLACE [Concomitant]
  5. PROTONIX [Concomitant]
  6. ATARAX [Concomitant]
  7. PERCOCET [Concomitant]
  8. DULCOLAX [Concomitant]
  9. ACTOS [Concomitant]
  10. GLYBURIDE [Concomitant]
  11. METFORMIN [Concomitant]
  12. DIOVAN HCT [Concomitant]
     Dosage: 1DF=160/25 UNITS NOS
  13. ATENOLOL [Concomitant]
  14. ZETIA [Concomitant]

REACTIONS (12)
  - Pancreatic carcinoma metastatic [Fatal]
  - Metastases to liver [Unknown]
  - Jaundice cholestatic [Unknown]
  - Transaminases increased [Unknown]
  - Pancreatitis [Unknown]
  - Hyponatraemia [Unknown]
  - International normalised ratio increased [Unknown]
  - Hypokalaemia [Unknown]
  - Nausea [Unknown]
  - Vomiting [Unknown]
  - Diarrhoea [Unknown]
  - Dyspepsia [Unknown]
